FAERS Safety Report 26186731 (Version 1)
Quarter: 2025Q4

REPORT INFORMATION
  Report Type: Spontaneous
  Country: US (occurrence: US)
  Receive Date: 20251222
  Receipt Date: 20251222
  Transmission Date: 20260117
  Serious: No
  Sender: BLUEPRINT MEDICINES
  Company Number: US-Blueprint Medicines Corporation-2025-AER-02734

PATIENT
  Age: 47 Year
  Sex: Female

DRUGS (2)
  1. AYVAKIT [Suspect]
     Active Substance: AVAPRITINIB
     Indication: Mastocytoma
     Route: 065
     Dates: start: 20250122
  2. AYVAKIT [Suspect]
     Active Substance: AVAPRITINIB
     Indication: Systemic mastocytosis

REACTIONS (6)
  - Pain in extremity [Unknown]
  - Osteochondroma [Unknown]
  - Brain fog [Unknown]
  - Aphasia [Unknown]
  - Fatigue [Unknown]
  - Menopause [Unknown]
